FAERS Safety Report 4361353-6 (Version None)
Quarter: 2004Q2

REPORT INFORMATION
  Report Type: 
  Country: None (occurrence: None)
  Receive Date: 20040517
  Receipt Date: 20040506
  Transmission Date: 20050107
  Serious: Yes (Hospitalization)
  Sender: FDA-Public Use
  Company Number: US-SHR-04-021214

PATIENT
  Age: 50 Year
  Sex: Female
  Weight: 63.5 kg

DRUGS (11)
  1. BETASERON (INTERFERON BETA - 1B) INJECTION, 250UG [Suspect]
     Indication: MULTIPLE SCLEROSIS
     Dosage: 8 MIU, EVERY 2D, SUBCUTANEOUS
     Route: 058
     Dates: start: 20030827
  2. TRILEPTAL [Concomitant]
  3. MIRAPEX [Concomitant]
  4. ESTRADIOL [Concomitant]
  5. NEXIUM [Concomitant]
  6. ADVAIR (SALMETEROL XINAFOATE, FLUTICASONE PROPIONATE) [Concomitant]
  7. SINGULAIR [Concomitant]
  8. ZYRTEC [Concomitant]
  9. OXYBUTYNIN [Concomitant]
  10. OTHER RESPIRATORY SYSTEM PRODUCTS [Concomitant]
  11. NASONEX [Concomitant]

REACTIONS (13)
  - CHOLELITHIASIS [None]
  - CONDITION AGGRAVATED [None]
  - DIAPHRAGMATIC DISORDER [None]
  - FATIGUE [None]
  - GALLBLADDER DISORDER [None]
  - HEADACHE [None]
  - HYPOAESTHESIA [None]
  - MULTIPLE SCLEROSIS [None]
  - MUSCLE CRAMP [None]
  - NAUSEA [None]
  - POST PROCEDURAL PAIN [None]
  - SALPINGO-OOPHORECTOMY BILATERAL [None]
  - TRIGEMINAL NEURALGIA [None]
